FAERS Safety Report 16708717 (Version 1)
Quarter: 2019Q3

REPORT INFORMATION
  Report Type: Report from Study
  Country: None (occurrence: US)
  Receive Date: 20190816
  Receipt Date: 20190816
  Transmission Date: 20191004
  Serious: Yes (Other)
  Sender: FDA-Public Use
  Company Number: US-ABBVIE-19K-163-2888313-00

PATIENT
  Age: 60 Year
  Sex: Female
  Weight: 77.18 kg

DRUGS (3)
  1. METOPROLOL TARTRATE. [Concomitant]
     Active Substance: METOPROLOL TARTRATE
     Indication: ATRIAL TACHYCARDIA
  2. LYRICA [Concomitant]
     Active Substance: PREGABALIN
     Indication: FIBROMYALGIA
  3. CREON [Suspect]
     Active Substance: PANCRELIPASE AMYLASE\PANCRELIPASE LIPASE\PANCRELIPASE PROTEASE
     Indication: PANCREATECTOMY
     Route: 048
     Dates: start: 20150908

REACTIONS (8)
  - Pulmonary embolism [Recovered/Resolved]
  - Fistula [Not Recovered/Not Resolved]
  - Abdominal adhesions [Not Recovered/Not Resolved]
  - Seroma [Not Recovered/Not Resolved]
  - Hernia [Not Recovered/Not Resolved]
  - Infection [Unknown]
  - Necrosis [Unknown]
  - Abdominal pain [Not Recovered/Not Resolved]

NARRATIVE: CASE EVENT DATE: 201509
